FAERS Safety Report 5164251-3 (Version None)
Quarter: 2006Q4

REPORT INFORMATION
  Report Type: 
  Country: None (occurrence: None)
  Receive Date: 20060918
  Receipt Date: 20051202
  Transmission Date: 20070319
  Serious: Yes (Other)
  Sender: FDA-Public Use
  Company Number: US-JNJFOC-20051002465

PATIENT
  Age: 33 Year
  Sex: Female

DRUGS (5)
  1. TOPAMAX [Suspect]
     Indication: MIGRAINE PROPHYLAXIS
     Dosage: 50 MG, 1 IN 1 DAY, ORAL
     Route: 048
     Dates: start: 20050901
  2. NORTRIPTYLINE HCL [Concomitant]
  3. KLONOPIN [Concomitant]
  4. GEODON [Concomitant]
  5. LIPITOR [Concomitant]

REACTIONS (2)
  - CONVULSION [None]
  - DRUG INEFFECTIVE [None]
